FAERS Safety Report 16098846 (Version 1)
Quarter: 2019Q1

REPORT INFORMATION
  Report Type: Spontaneous
  Country: US (occurrence: US)
  Receive Date: 20190321
  Receipt Date: 20190321
  Transmission Date: 20190418
  Serious: No
  Sender: FDA-Public Use
  Company Number: US-AMGEN-USASP2019039874

PATIENT
  Age: 56 Year
  Sex: Female

DRUGS (1)
  1. ENBREL [Suspect]
     Active Substance: ETANERCEPT
     Indication: RHEUMATOID ARTHRITIS
     Dosage: 50 MILLIGRAM, QWK
     Route: 065
     Dates: start: 2016

REACTIONS (13)
  - Injection site erythema [Recovered/Resolved]
  - Mobility decreased [Recovered/Resolved]
  - Injection site papule [Recovering/Resolving]
  - Injection site inflammation [Recovered/Resolved]
  - Cough [Recovered/Resolved]
  - Rash pruritic [Not Recovered/Not Resolved]
  - Fatigue [Recovered/Resolved]
  - Injection site pain [Unknown]
  - Feeling abnormal [Recovered/Resolved]
  - Rash papular [Not Recovered/Not Resolved]
  - Injection site pruritus [Recovering/Resolving]
  - Chest discomfort [Recovered/Resolved]
  - Body temperature increased [Recovering/Resolving]

NARRATIVE: CASE EVENT DATE: 201903
